FAERS Safety Report 21584680 (Version 7)
Quarter: 2022Q4

REPORT INFORMATION
  Report Type: Report from Study
  Country: AU (occurrence: None)
  Receive Date: 20221111
  Receipt Date: 20221221
  Transmission Date: 20230112
  Serious: Yes (Hospitalization)
  Sender: FDA-Public Use
  Company Number: AU-Eisai Medical Research-EC-2022-127770

PATIENT
  Age: 82 Year
  Sex: Male
  Weight: 74 kg

DRUGS (14)
  1. LENVATINIB [Suspect]
     Active Substance: LENVATINIB
     Indication: Colorectal cancer metastatic
     Dosage: FLUCTUATED DOSAGE STARTING DOSE 20 MG
     Route: 048
     Dates: start: 20211209, end: 20220526
  2. PEMBROLIZUMAB [Suspect]
     Active Substance: PEMBROLIZUMAB
     Indication: Colorectal cancer metastatic
     Route: 041
     Dates: start: 20211112, end: 20220902
  3. AMLODIPINE [Concomitant]
     Active Substance: AMLODIPINE BESYLATE
     Dates: start: 200111
  4. ATORVASTATIN [Concomitant]
     Active Substance: ATORVASTATIN
     Dates: start: 202107
  5. SOLONE [PREDNISOLONE] [Concomitant]
     Dates: start: 202107
  6. SYMBICORT [Concomitant]
     Active Substance: BUDESONIDE\FORMOTEROL FUMARATE DIHYDRATE
     Dates: start: 202102
  7. SPIRIVA [Concomitant]
     Active Substance: TIOTROPIUM BROMIDE MONOHYDRATE
     Dates: start: 202102
  8. CALCIUM CARBONATE [Concomitant]
     Active Substance: CALCIUM CARBONATE
     Dates: start: 202002
  9. MAGNESIUM [Concomitant]
     Active Substance: MAGNESIUM
     Dates: start: 202002
  10. SLOW-K [Concomitant]
     Active Substance: POTASSIUM CHLORIDE
     Dates: start: 202002
  11. FUROSEMIDE [Concomitant]
     Active Substance: FUROSEMIDE
     Dates: start: 20220106
  12. IMODIUM [Concomitant]
     Active Substance: LOPERAMIDE HYDROCHLORIDE
     Dates: start: 20220210
  13. ZIRCOL [Concomitant]
     Dates: start: 20211115
  14. PREDNISOLONE [Concomitant]
     Active Substance: PREDNISOLONE
     Dates: start: 20220917

REACTIONS (1)
  - Abscess limb [Not Recovered/Not Resolved]

NARRATIVE: CASE EVENT DATE: 20221010
